FAERS Safety Report 4583218-7 (Version None)
Quarter: 2005Q1

REPORT INFORMATION
  Report Type: 
  Country: None (occurrence: None)
  Receive Date: 20050215
  Receipt Date: 20050210
  Transmission Date: 20050727
  Serious: Yes (Life-Threatening, Hospitalization)
  Sender: FDA-Public Use
  Company Number: US-MERCK-0502USA01310

PATIENT
  Age: 70 Year
  Sex: Male

DRUGS (7)
  1. INDOCIN [Suspect]
     Indication: ARTHRITIS
     Route: 048
     Dates: start: 19850101
  2. [THERAPY UNSPECIFIED] [Concomitant]
     Route: 065
  3. ZETIA [Concomitant]
     Route: 065
  4. LIPITOR [Concomitant]
     Route: 065
  5. DIGOXIN [Concomitant]
     Route: 065
  6. COREG [Concomitant]
     Route: 065
  7. WARFARIN [Concomitant]
     Route: 065

REACTIONS (3)
  - ARTERIAL OCCLUSIVE DISEASE [None]
  - CARDIAC FAILURE [None]
  - PULMONARY OEDEMA [None]
